FAERS Safety Report 8180652-3 (Version None)
Quarter: 2012Q1

REPORT INFORMATION
  Report Type: 
  Country: None (occurrence: None)
  Receive Date: 20120301
  Receipt Date: 20120301
  Transmission Date: 20120608
  Serious: No
  Sender: FDA-Public Use
  Company Number: None

PATIENT
  Sex: Female
  Weight: 74.8435 kg

DRUGS (1)
  1. AMPYRA [Suspect]
     Indication: MULTIPLE SCLEROSIS
     Dosage: 10 MG. BID ORAL
     Route: 048
     Dates: start: 20111101, end: 20120101

REACTIONS (3)
  - ABDOMINAL DISCOMFORT [None]
  - NAUSEA [None]
  - ERUCTATION [None]
